FAERS Safety Report 7279727-2 (Version None)
Quarter: 2011Q1

REPORT INFORMATION
  Report Type: 
  Country: None (occurrence: None)
  Receive Date: 20110203
  Receipt Date: 20110203
  Transmission Date: 20110831
  Serious: Yes (Life-Threatening, Hospitalization, Other)
  Sender: FDA-Public Use
  Company Number: None

PATIENT
  Sex: Female
  Weight: 56.6996 kg

DRUGS (2)
  1. YAZ [Suspect]
     Indication: ORAL CONTRACEPTION
     Dosage: 1 PILL 1X/DAY PO
     Route: 048
     Dates: start: 20040501, end: 20080601
  2. OCELLA 3/0.03MG BARR [Suspect]
     Indication: ORAL CONTRACEPTION
     Dates: start: 20100101, end: 20110101

REACTIONS (15)
  - COLD SWEAT [None]
  - FATIGUE [None]
  - VOMITING [None]
  - CHOLELITHIASIS [None]
  - PALLOR [None]
  - ASTHENIA [None]
  - DYSPNOEA [None]
  - SPLENOMEGALY [None]
  - DEHYDRATION [None]
  - DIZZINESS [None]
  - DECREASED APPETITE [None]
  - DIARRHOEA [None]
  - WEIGHT DECREASED [None]
  - GALLBLADDER ENLARGEMENT [None]
  - NAUSEA [None]
